FAERS Safety Report 7839730-8 (Version None)
Quarter: 2011Q4

REPORT INFORMATION
  Report Type: 
  Country: None (occurrence: None)
  Receive Date: 20111025
  Receipt Date: 20111013
  Transmission Date: 20120403
  Serious: Yes (Hospitalization, Disabling)
  Sender: FDA-Public Use
  Company Number: GB-RANBAXY-2011R1-49515

PATIENT
  Age: 13 Year
  Sex: Female
  Weight: 64.6 kg

DRUGS (4)
  1. TOPIRAMATE [Suspect]
     Indication: CONVULSION
     Dosage: 25 MG, QD
     Route: 065
     Dates: start: 20100101
  2. TOPIRAMATE [Suspect]
     Dosage: 50 MG, BID
     Route: 065
     Dates: start: 20100101
  3. TOPIRAMATE [Suspect]
     Dosage: 75 MG, BID
     Route: 065
     Dates: start: 20100101, end: 20100101
  4. TOPIRAMATE [Suspect]
     Dosage: 25 MG, BID
     Route: 065
     Dates: start: 20100101

REACTIONS (8)
  - SPEECH DISORDER [None]
  - DEPRESSED MOOD [None]
  - PERSONALITY CHANGE [None]
  - APATHY [None]
  - CONVULSION [None]
  - DECREASED APPETITE [None]
  - ALOPECIA [None]
  - WEIGHT DECREASED [None]
